FAERS Safety Report 9997151 (Version 1)
Quarter: 2014Q1

REPORT INFORMATION
  Report Type: Spontaneous
  Country: US (occurrence: US)
  Receive Date: 20140311
  Receipt Date: 20140311
  Transmission Date: 20141002
  Serious: No
  Sender: FDA-Public Use
  Company Number: US-GLAXOSMITHKLINE-A1019976A

PATIENT
  Age: 45 Year
  Sex: Male

DRUGS (1)
  1. KROGER COATED MINT NICOTINE GUM, 2MG [Suspect]
     Indication: EX-TOBACCO USER
     Route: 048
     Dates: start: 20130411, end: 20130411

REACTIONS (4)
  - Nausea [Recovered/Resolved]
  - Throat tightness [Recovered/Resolved]
  - Sensation of foreign body [Recovered/Resolved]
  - Condition aggravated [Recovered/Resolved]
